FAERS Safety Report 7104585-6 (Version None)
Quarter: 2010Q4

REPORT INFORMATION
  Report Type: 
  Country: None (occurrence: None)
  Receive Date: 20101109
  Receipt Date: 20101026
  Transmission Date: 20110411
  Serious: Yes (Other)
  Sender: FDA-Public Use
  Company Number: 2010P1002227

PATIENT
  Age: 75 Year
  Sex: Female

DRUGS (3)
  1. FENTANYL [Suspect]
     Indication: PELVIC FRACTURE
     Dosage: TDER
     Route: 062
     Dates: start: 20101007
  2. MORPHINE [Concomitant]
  3. VICODIN [Concomitant]

REACTIONS (4)
  - DISTURBANCE IN ATTENTION [None]
  - DYSPNOEA [None]
  - HALLUCINATION [None]
  - OVERDOSE [None]
